FAERS Safety Report 7325055-6 (Version None)
Quarter: 2011Q1

REPORT INFORMATION
  Report Type: 
  Country: None (occurrence: None)
  Receive Date: 20110302
  Receipt Date: 20110223
  Transmission Date: 20110831
  Serious: Yes (Other)
  Sender: FDA-Public Use
  Company Number: US-ASTRAZENECA-2007UW12304

PATIENT
  Age: 16710 Day
  Sex: Female
  Weight: 142.9 kg

DRUGS (35)
  1. THIAMINE [Concomitant]
     Route: 065
  2. ABILIFY [Concomitant]
  3. HALDOL [Concomitant]
  4. VALIUM [Concomitant]
  5. SEROQUEL [Suspect]
     Dosage: 100 MG  - 400 MG
     Route: 048
     Dates: start: 20020709
  6. PHENERGAN [Concomitant]
     Dosage: 25 MG - 100 MG DAILY
     Route: 065
  7. SEROQUEL [Suspect]
     Indication: BIPOLAR DISORDER
     Route: 048
     Dates: start: 20000101, end: 20070101
  8. REGLAN [Concomitant]
     Route: 065
  9. PROTONIX [Concomitant]
     Route: 065
  10. PHENOBARBITAL TAB [Concomitant]
     Route: 065
  11. CHLORPROMAZINE [Concomitant]
     Route: 065
  12. AZULFIDINE [Concomitant]
     Route: 065
  13. CLOZARIL [Concomitant]
  14. SEROQUEL [Suspect]
     Indication: SCHIZOPHRENIA
     Route: 048
     Dates: start: 20000101, end: 20070101
  15. SEROQUEL [Suspect]
     Dosage: 100 MG  - 400 MG
     Route: 048
     Dates: start: 20020709
  16. CELEXA [Concomitant]
     Route: 065
  17. EFFEXOR [Concomitant]
     Dosage: 37.5 MG - 150 MG
     Route: 065
  18. DESYREL [Concomitant]
     Route: 065
  19. LASIX [Concomitant]
     Route: 065
  20. CODEINE [Concomitant]
     Route: 065
  21. DARVOCET-N 100 [Concomitant]
     Route: 065
  22. PHENAZOPYRIDINE HCL TAB [Concomitant]
     Indication: URINARY TRACT INFECTION
  23. BENADRYL [Concomitant]
     Route: 065
  24. GEODON [Concomitant]
  25. WELLBUTRIN [Concomitant]
  26. TENORMIN [Concomitant]
     Route: 065
  27. VISTARIL [Concomitant]
     Dosage: 25 MG - 75 MG
     Route: 065
  28. AMITRIPTYLINE HCL [Concomitant]
     Route: 065
  29. COLACE [Concomitant]
     Route: 065
  30. PEPCID [Concomitant]
     Route: 065
  31. NUBAIN [Concomitant]
     Dosage: 10 MG/ ML
     Route: 065
  32. SEROQUEL [Suspect]
     Indication: DEPRESSION
     Route: 048
     Dates: start: 20000101, end: 20070101
  33. SEROQUEL [Suspect]
     Dosage: 100 MG  - 400 MG
     Route: 048
     Dates: start: 20020709
  34. BENTYL [Concomitant]
     Dosage: 40 MG - 80 MG DAILY
     Route: 065
  35. KLONOPIN [Concomitant]
     Dosage: 0.5 MG - 1 MG
     Route: 065

REACTIONS (2)
  - TYPE 2 DIABETES MELLITUS [None]
  - DIABETIC NEUROPATHY [None]
